FAERS Safety Report 17820675 (Version 1)
Quarter: 2020Q2

REPORT INFORMATION
  Report Type: Spontaneous
  Country: PA (occurrence: PA)
  Receive Date: 20200525
  Receipt Date: 20200525
  Transmission Date: 20200714
  Serious: Yes (Other)
  Sender: FDA-Public Use
  Company Number: PA-US-PROVELL PHARMACEUTICALS LLC-9163658

PATIENT
  Sex: Female

DRUGS (2)
  1. EUTHYROX [Suspect]
     Active Substance: LEVOTHYROXINE SODIUM
     Indication: HYPOTHYROIDISM
     Dosage: 50 (PRESUMABLY 50 MCG) AT THE AGE OF 18
  2. EUTHYROX [Suspect]
     Active Substance: LEVOTHYROXINE SODIUM
     Dosage: UNIT DOSE: 100 (PRESUMABLY MICROGRAM)

REACTIONS (10)
  - Dysphonia [Unknown]
  - Influenza [Unknown]
  - Alopecia [Unknown]
  - Stress [Unknown]
  - Dyspnoea [Unknown]
  - Swelling [Unknown]
  - Feeling cold [Unknown]
  - Musculoskeletal discomfort [Unknown]
  - Dry skin [Unknown]
  - Muscle spasms [Unknown]
